FAERS Safety Report 11194706 (Version 1)
Quarter: 2015Q2

REPORT INFORMATION
  Report Type: Spontaneous
  Country: US (occurrence: US)
  Receive Date: 20150617
  Receipt Date: 20150617
  Transmission Date: 20150821
  Serious: No
  Sender: FDA-Public Use
  Company Number: US-SUN PHARMACEUTICAL INDUSTRIES LTD-2015US-94174

PATIENT
  Age: 27 Year
  Sex: Female

DRUGS (1)
  1. ABSORICA [Suspect]
     Active Substance: ISOTRETINOIN
     Indication: ACNE
     Dosage: 40 MG, BID
     Route: 065
     Dates: start: 20141001, end: 20150221

REACTIONS (5)
  - Dry eye [Unknown]
  - Irritability [Unknown]
  - Menstrual disorder [Unknown]
  - Rash [Unknown]
  - Mood swings [Unknown]

NARRATIVE: CASE EVENT DATE: 20150101
